FAERS Safety Report 10475784 (Version 1)
Quarter: 2014Q3

REPORT INFORMATION
  Report Type: Spontaneous
  Country: US (occurrence: US)
  Receive Date: 20140925
  Receipt Date: 20140925
  Transmission Date: 20150326
  Serious: No
  Sender: FDA-Public Use
  Company Number: US-GLAXOSMITHKLINE-A1046194A

PATIENT
  Age: 86 Year
  Sex: Female

DRUGS (2)
  1. COREG [Suspect]
     Active Substance: CARVEDILOL
     Indication: HYPERTENSION
     Dosage: 25MG UNKNOWN
     Route: 065
     Dates: start: 2011
  2. DIOVAN [Concomitant]
     Active Substance: VALSARTAN

REACTIONS (2)
  - Cyanosis [Recovered/Resolved]
  - Skin discolouration [Unknown]
